FAERS Safety Report 7625531-2 (Version None)
Quarter: 2011Q3

REPORT INFORMATION
  Report Type: 
  Country: None (occurrence: None)
  Receive Date: 20110721
  Receipt Date: 20110713
  Transmission Date: 20111222
  Serious: Yes (Death, Other)
  Sender: FDA-Public Use
  Company Number: JP-EISAI INC-E3810-04811-SPO-JP

PATIENT
  Sex: Male

DRUGS (2)
  1. RABEPRAZOLE SODIUM [Suspect]
     Dosage: UNKNOWN
     Route: 048
     Dates: start: 20110114
  2. RABEPRAZOLE SODIUM [Suspect]
     Dosage: UNKNOWN
     Route: 048
     Dates: start: 20100927

REACTIONS (4)
  - OCULOMUCOCUTANEOUS SYNDROME [None]
  - VISUAL IMPAIRMENT [None]
  - BLOOD PRESSURE DECREASED [None]
  - SUBARACHNOID HAEMORRHAGE [None]
